FAERS Safety Report 7947944-1 (Version None)
Quarter: 2011Q4

REPORT INFORMATION
  Report Type: 
  Country: None (occurrence: None)
  Receive Date: 20111130
  Receipt Date: 20111118
  Transmission Date: 20120403
  Serious: Yes (Hospitalization, Disabling, Congenital Anomaly)
  Sender: FDA-Public Use
  Company Number: GB-JNJFOC-20111108901

PATIENT
  Sex: Female

DRUGS (3)
  1. AZATHIOPRINE [Concomitant]
     Route: 065
  2. PENTASA [Concomitant]
     Route: 065
  3. REMICADE [Suspect]
     Indication: FOETAL EXPOSURE DURING PREGNANCY
     Route: 064

REACTIONS (3)
  - CARDIAC ARREST [None]
  - DISABILITY [None]
  - LOWER RESPIRATORY TRACT INFECTION [None]
